FAERS Safety Report 5482790-2 (Version None)
Quarter: 2007Q4

REPORT INFORMATION
  Report Type: 
  Country: None (occurrence: None)
  Receive Date: 20071011
  Receipt Date: 20070928
  Transmission Date: 20080405
  Serious: Yes (Other)
  Sender: FDA-Public Use
  Company Number: US-PFIZER INC-2007082565

PATIENT
  Sex: Female

DRUGS (5)
  1. CHANTIX [Suspect]
     Indication: EX-SMOKER
     Dates: start: 20070819, end: 20070925
  2. FOSAMAX [Concomitant]
  3. VITAMINS [Concomitant]
  4. FISH OIL [Concomitant]
  5. DRUG, UNSPECIFIED [Concomitant]

REACTIONS (11)
  - CONSTIPATION [None]
  - DISTURBANCE IN ATTENTION [None]
  - FATIGUE [None]
  - GASTROINTESTINAL HAEMORRHAGE [None]
  - INSOMNIA [None]
  - MANIA [None]
  - MUSCLE SPASMS [None]
  - NAUSEA [None]
  - PSYCHOMOTOR HYPERACTIVITY [None]
  - SKIN ODOUR ABNORMAL [None]
  - WEIGHT INCREASED [None]
